FAERS Safety Report 24603474 (Version 1)
Quarter: 2024Q4

REPORT INFORMATION
  Report Type: Report from Study
  Country: AU (occurrence: AU)
  Receive Date: 20241111
  Receipt Date: 20241111
  Transmission Date: 20250114
  Serious: Yes (Life-Threatening, Hospitalization)
  Sender: MYLAN
  Company Number: AU-MYLANLABS-2024M1100643

PATIENT
  Age: 5 Decade
  Sex: Female

DRUGS (3)
  1. REMIFENTANIL [Suspect]
     Active Substance: REMIFENTANIL
     Indication: Anaesthesia procedure
     Dosage: 0.1 MILLIGRAM/KILOGRAM, QMINUTE
     Route: 042
  2. REMIFENTANIL [Suspect]
     Active Substance: REMIFENTANIL
     Dosage: 0.15 MILLIGRAM/KILOGRAM, QMINUTE
     Route: 042
  3. LIDOCAINE [Suspect]
     Active Substance: LIDOCAINE
     Indication: Anaesthesia procedure
     Dosage: UNK
     Route: 065

REACTIONS (5)
  - Unresponsive to stimuli [Recovering/Resolving]
  - Hypoventilation [Recovering/Resolving]
  - Hypercapnia [Recovering/Resolving]
  - Hypertonia [Recovering/Resolving]
  - Dystonia [Recovering/Resolving]
